FAERS Safety Report 6338477-7 (Version None)
Quarter: 2009Q3

REPORT INFORMATION
  Report Type: 
  Country: None (occurrence: None)
  Receive Date: 20090901
  Receipt Date: 20090818
  Transmission Date: 20100115
  Serious: Yes (Other)
  Sender: FDA-Public Use
  Company Number: DSA_03057_2009

PATIENT
  Age: 48 Year
  Sex: Female
  Weight: 51 kg

DRUGS (1)
  1. VANIQA [Suspect]
     Indication: HIRSUTISM
     Dosage: (1 DF BID TOPICAL)
     Route: 061
     Dates: start: 20080905, end: 20081210

REACTIONS (1)
  - ACNE CYSTIC [None]
